FAERS Safety Report 20204089 (Version 2)
Quarter: 2023Q1

REPORT INFORMATION
  Report Type: Spontaneous
  Country: ES (occurrence: ES)
  Receive Date: 20211220
  Receipt Date: 20230316
  Transmission Date: 20230417
  Serious: Yes (Death)
  Sender: FDA-Public Use
  Company Number: None

PATIENT
  Age: 77 Year
  Sex: Male

DRUGS (12)
  1. RISPERDAL [Suspect]
     Active Substance: RISPERIDONE
     Indication: Delirium
     Dosage: 1.5 MG EVERY 24 H
     Route: 048
     Dates: start: 20200227, end: 20200730
  2. TRAZODONE HYDROCHLORIDE [Suspect]
     Active Substance: TRAZODONE HYDROCHLORIDE
     Indication: Product used for unknown indication
     Dosage: 100.0 MG EVERY 24 H NIGHT
     Route: 048
     Dates: start: 20200420, end: 20200730
  3. CALCIFEDIOL [Concomitant]
     Active Substance: CALCIFEDIOL
     Indication: Nephropathy
     Dosage: 0.266 MG ORAL SOLUTION, 10 1.5 ML DRINKABLE AMPOULES?16000.0 UI C / 30 DAYS
     Route: 048
     Dates: start: 20180425
  4. REPAGLINIDE [Concomitant]
     Active Substance: REPAGLINIDE
     Indication: Diabetes mellitus
     Dosage: 0.5 MG DINNER
     Route: 048
     Dates: start: 20200605
  5. FOLIC ACID [Concomitant]
     Active Substance: FOLIC ACID
     Indication: Folate deficiency
     Dosage: 5.0 MG C / 48 HOURS
     Route: 048
     Dates: start: 20190130
  6. MANIDIPINE HYDROCHLORIDE [Concomitant]
     Active Substance: MANIDIPINE HYDROCHLORIDE
     Indication: Hypertension
     Dosage: 5.0 MG DINNER
     Route: 048
     Dates: start: 20190108
  7. OMEPRAZOLE [Concomitant]
     Active Substance: OMEPRAZOLE
     Indication: Back pain
     Dosage: 20.0 MG BEFORE DINNER
     Route: 048
     Dates: start: 20100717
  8. LINAGLIPTIN [Concomitant]
     Active Substance: LINAGLIPTIN
     Indication: Diabetes mellitus
     Dosage: 5.0 MG EVERY 24 H
     Route: 048
     Dates: start: 20200521
  9. CARVEDILOL [Concomitant]
     Active Substance: CARVEDILOL
     Indication: Essential hypertension
     Dosage: 6.25 MG BREAKFAST
     Route: 048
     Dates: start: 20200707
  10. MYCOSTATIN [Concomitant]
     Active Substance: NYSTATIN
     Indication: Neoplasm malignant
     Dosage: 500000.0 UI EVERY 6 HOURS
     Route: 048
     Dates: start: 20200116
  11. ZALDIAR [Concomitant]
     Active Substance: ACETAMINOPHEN\TRAMADOL HYDROCHLORIDE
     Indication: Product used for unknown indication
     Dosage: FORM STRENGTH-  37.5 MG / 325 MG?UNIT DOSE- 1.0 COMPRESSED EVERY 12 H
     Route: 048
     Dates: start: 20190408
  12. METAMIZOLE MAGNESIUM [Concomitant]
     Active Substance: METAMIZOLE MAGNESIUM
     Indication: Product used for unknown indication
     Dosage: 575.0 MG BREAKFAST AND DINNER
     Route: 048
     Dates: start: 20181009

REACTIONS (3)
  - Neurological decompensation [Fatal]
  - Off label use [Unknown]
  - Product use in unapproved indication [Unknown]

NARRATIVE: CASE EVENT DATE: 20200728
